FAERS Safety Report 5773161-X (Version None)
Quarter: 2008Q2

REPORT INFORMATION
  Report Type: 
  Country: None (occurrence: None)
  Receive Date: 20080616
  Receipt Date: 20080319
  Transmission Date: 20081010
  Serious: No
  Sender: FDA-Public Use
  Company Number: US-BAYER-200811317BCC

PATIENT
  Age: 58 Year
  Sex: Male
  Weight: 64 kg

DRUGS (3)
  1. ALEVE (CAPLET) [Suspect]
     Indication: EPICONDYLITIS
     Route: 048
     Dates: start: 20070101
  2. ZESTRIL [Concomitant]
  3. DOXYCYCLINE [Concomitant]

REACTIONS (1)
  - CONSTIPATION [None]
